FAERS Safety Report 12316240 (Version 2)
Quarter: 2016Q2

REPORT INFORMATION
  Report Type: Spontaneous
  Country: JP (occurrence: JP)
  Receive Date: 20160428
  Receipt Date: 20160526
  Transmission Date: 20160815
  Serious: Yes (Hospitalization, Other)
  Sender: FDA-Public Use
  Company Number: JP-009507513-1604JPN014816

PATIENT
  Age: 86 Year
  Sex: Female

DRUGS (2)
  1. PREMINENT TABLETS [Suspect]
     Active Substance: HYDROCHLOROTHIAZIDE\LOSARTAN POTASSIUM
     Dosage: 1 TABLET, QD
     Route: 048
     Dates: start: 201603, end: 20160419
  2. GLYCYRRHIZA [Suspect]
     Active Substance: LICORICE
     Dosage: DAILY DOSE UNKNOWN
     Route: 065
     Dates: start: 201603, end: 20160419

REACTIONS (5)
  - Altered state of consciousness [Recovered/Resolved]
  - Blood sodium decreased [Recovered/Resolved]
  - Blood potassium decreased [Recovered/Resolved]
  - Malaise [Recovered/Resolved]
  - Rhabdomyolysis [Recovered/Resolved]

NARRATIVE: CASE EVENT DATE: 201604
